FAERS Safety Report 20681018 (Version 3)
Quarter: 2022Q3

REPORT INFORMATION
  Report Type: Report from Study
  Country: US (occurrence: US)
  Receive Date: 20220406
  Receipt Date: 20220902
  Transmission Date: 20221027
  Serious: Yes (Other)
  Sender: FDA-Public Use
  Company Number: US-JNJFOC-20220359828

PATIENT
  Age: 7 Year
  Sex: Female

DRUGS (11)
  1. CISAPRIDE [Suspect]
     Active Substance: CISAPRIDE
     Indication: Gastrooesophageal reflux disease
     Dosage: 3.4 (UNSPECIFIED UNITS)
     Route: 048
     Dates: start: 20190219
  2. CISAPRIDE [Suspect]
     Active Substance: CISAPRIDE
     Indication: Gastrooesophageal reflux disease
     Dosage: 1.8 (UNSPECIFIED UNITS)
     Route: 048
     Dates: start: 20190712
  3. CISAPRIDE [Suspect]
     Active Substance: CISAPRIDE
     Dosage: 3.6 (UNSPECIFIED UNITS)
     Route: 048
     Dates: start: 20191212
  4. CISAPRIDE [Suspect]
     Active Substance: CISAPRIDE
     Dosage: 3.6 (UNSPECIFIED UNITS)
     Route: 048
     Dates: start: 20190519
  5. CISAPRIDE [Suspect]
     Active Substance: CISAPRIDE
     Dosage: 1.7 (UNITS UNSPECIFIED)
     Route: 048
     Dates: start: 20190822
  6. CISAPRIDE [Suspect]
     Active Substance: CISAPRIDE
     Route: 048
     Dates: start: 20210513
  7. ALBUTEROL SULFATE [Concomitant]
     Active Substance: ALBUTEROL SULFATE
     Indication: Cough
     Dates: start: 20201111
  8. FERROUS SULFATE [Concomitant]
     Active Substance: FERROUS SULFATE
     Indication: Iron deficiency
  9. OMEPRAZOLE [Concomitant]
     Active Substance: OMEPRAZOLE
     Dates: start: 20210805
  10. PEDIALYTE [CALCIUM CHLORIDE;GLUCOSE;MAGNESIUM CHLORIDE;POTASSIUM CHLOR [Concomitant]
  11. TRIAMCINOLONE ACETONIDE [Concomitant]
     Active Substance: TRIAMCINOLONE ACETONIDE

REACTIONS (1)
  - Electrocardiogram abnormal [Recovering/Resolving]

NARRATIVE: CASE EVENT DATE: 20210813
